FAERS Safety Report 22860961 (Version 2)
Quarter: 2023Q4

REPORT INFORMATION
  Report Type: Spontaneous
  Country: GB (occurrence: GB)
  Receive Date: 20230824
  Receipt Date: 20231023
  Transmission Date: 20240110
  Serious: Yes (Other)
  Sender: FDA-Public Use
  Company Number: None

PATIENT
  Sex: Male

DRUGS (1)
  1. MEMANTINE [Suspect]
     Active Substance: MEMANTINE
     Indication: Vascular dementia
     Dosage: BEEN TAKING THIS DRUG NOW FOR APPROXIMATELY 2 YEARS
     Route: 065

REACTIONS (3)
  - Dementia [Not Recovered/Not Resolved]
  - Mobility decreased [Unknown]
  - Off label use [Unknown]
